FAERS Safety Report 24316061 (Version 1)
Quarter: 2024Q3

REPORT INFORMATION
  Report Type: Spontaneous
  Country: CN (occurrence: CN)
  Receive Date: 20240913
  Receipt Date: 20240913
  Transmission Date: 20241017
  Serious: Yes (Other)
  Sender: Carnegie Pharmaceuticals
  Company Number: CN-CARNEGIE-000030

PATIENT
  Age: 46 Year
  Sex: Female

DRUGS (1)
  1. LETROZOLE [Suspect]
     Active Substance: LETROZOLE
     Indication: Ovarian granulosa cell tumour
     Route: 065
     Dates: start: 201907, end: 202002

REACTIONS (4)
  - Ovarian granulosa cell tumour [Recovered/Resolved]
  - Disease progression [Recovered/Resolved]
  - Ovarian cancer recurrent [Recovered/Resolved]
  - Drug resistance [Unknown]

NARRATIVE: CASE EVENT DATE: 20200201
